FAERS Safety Report 4713843-1 (Version None)
Quarter: 2005Q3

REPORT INFORMATION
  Report Type: 
  Country: None (occurrence: None)
  Receive Date: 20050712
  Receipt Date: 20050630
  Transmission Date: 20060218
  Serious: Yes (Death, Hospitalization)
  Sender: FDA-Public Use
  Company Number: 200511335BWH

PATIENT
  Age: 68 Year
  Sex: Female

DRUGS (2)
  1. TRASYLOL [Suspect]
     Indication: HEART VALVE OPERATION
     Dosage: INTRAVENOUS
     Route: 042
     Dates: start: 20050630
  2. PROTAMINE [Concomitant]

REACTIONS (10)
  - BLOOD LACTATE DEHYDROGENASE INCREASED [None]
  - CARDIAC VALVE REPLACEMENT COMPLICATION [None]
  - DIALYSIS [None]
  - DISSEMINATED INTRAVASCULAR COAGULATION [None]
  - GASTROINTESTINAL HAEMORRHAGE [None]
  - HAEMOLYSIS [None]
  - INCISION SITE HAEMORRHAGE [None]
  - RENAL FAILURE ACUTE [None]
  - RESPIRATORY FAILURE [None]
  - THROMBOCYTOPENIC PURPURA [None]
